FAERS Safety Report 21214670 (Version 1)
Quarter: 2022Q3

REPORT INFORMATION
  Report Type: Spontaneous
  Country: UG (occurrence: UG)
  Receive Date: 20220816
  Receipt Date: 20220816
  Transmission Date: 20221026
  Serious: Yes (Other)
  Sender: FDA-Public Use
  Company Number: SE-009507513-2207UGA009427

PATIENT
  Age: 7 Year

DRUGS (1)
  1. EFAVIRENZ [Suspect]
     Active Substance: EFAVIRENZ
     Indication: HIV infection
     Dosage: UNK(24 WEEKS, DOSE ACCORDING TO WEIGHT BANDS )
     Route: 048

REACTIONS (1)
  - Pathogen resistance [Unknown]
